FAERS Safety Report 24279828 (Version 1)
Quarter: 2024Q3

REPORT INFORMATION
  Report Type: Spontaneous
  Country: US (occurrence: None)
  Receive Date: 20240904
  Receipt Date: 20240904
  Transmission Date: 20241016
  Serious: No
  Sender: ASTRAZENECA
  Company Number: 2024A198164

PATIENT
  Age: 62 Year
  Sex: Female

DRUGS (1)
  1. BYDUREON BCISE [Suspect]
     Active Substance: EXENATIDE
     Route: 058

REACTIONS (6)
  - Injection site haemorrhage [Unknown]
  - Inappropriate schedule of product administration [Unknown]
  - Incorrect dose administered by device [Unknown]
  - Device use issue [Unknown]
  - Panic reaction [Unknown]
  - Hypoglycaemia [Unknown]
